FAERS Safety Report 8796394 (Version 1)
Quarter: 2012Q4

REPORT INFORMATION
  Report Type: 
  Country: CA (occurrence: CA)
  Receive Date: 20120920
  Receipt Date: 20120920
  Transmission Date: 20130627
  Serious: Yes (Death)
  Sender: FDA-Public Use
  Company Number: PHHY2012CA081182

PATIENT
  Sex: Male

DRUGS (1)
  1. SANDOSTATIN LAR [Suspect]
     Indication: ANGIODYSPLASIA
     Dosage: 10 mg, Every 4 weeks
     Route: 030
     Dates: start: 20120111

REACTIONS (1)
  - Death [Fatal]
